FAERS Safety Report 7894277-8 (Version None)
Quarter: 2011Q4

REPORT INFORMATION
  Report Type: 
  Country: None (occurrence: None)
  Receive Date: 20111104
  Receipt Date: 20111103
  Transmission Date: 20120403
  Serious: Yes (Death)
  Sender: FDA-Public Use
  Company Number: CN-ROCHE-747484

PATIENT
  Sex: Female

DRUGS (3)
  1. MYCOPHENOLATE MOFETIL (CELLCEPT) [Suspect]
     Indication: LIVER TRANSPLANT
     Route: 048
     Dates: start: 20090623
  2. CYCLOSPORINE [Concomitant]
     Indication: LIVER TRANSPLANT
  3. STEROID NOS [Concomitant]
     Indication: LIVER TRANSPLANT

REACTIONS (1)
  - DEATH [None]
